FAERS Safety Report 13619154 (Version 1)
Quarter: 2017Q2

REPORT INFORMATION
  Report Type: Spontaneous
  Country: US (occurrence: US)
  Receive Date: 20170606
  Receipt Date: 20170606
  Transmission Date: 20170830
  Serious: Yes (Hospitalization, Other)
  Sender: FDA-Public Use
  Company Number: US-AMGEN-USASP2016123514

PATIENT
  Age: 80 Year
  Sex: Female
  Weight: 82.86 kg

DRUGS (24)
  1. PROCRIT [Suspect]
     Active Substance: ERYTHROPOIETIN
     Dosage: 10,000 UNITS, WEEKLY
     Route: 042
     Dates: start: 200303, end: 200306
  2. PROCRIT [Suspect]
     Active Substance: ERYTHROPOIETIN
     Dosage: 10,000 UNITS, WEEKLY
     Route: 042
     Dates: start: 200508, end: 200604
  3. PROCRIT [Suspect]
     Active Substance: ERYTHROPOIETIN
     Dosage: 10,000 UNITS, TWICE MONTHLY
     Route: 042
     Dates: start: 200707, end: 2010
  4. FLAXSEED [Concomitant]
     Active Substance: FLAX SEED
     Indication: SUPPLEMENTATION THERAPY
     Dosage: UNK UNK, DAILY
  5. HYDRALAZINE [Concomitant]
     Active Substance: HYDRALAZINE HYDROCHLORIDE
     Indication: HYPERTENSION
     Dosage: 10 MG, THREE TIMES DAILY
  6. BRIMONIDINE [Concomitant]
     Active Substance: BRIMONIDINE TARTRATE
     Indication: GLAUCOMA
     Dosage: UNK UNK, TWICE DAILY
  7. PROCRIT [Suspect]
     Active Substance: ERYTHROPOIETIN
     Indication: ANAEMIA
     Dosage: 10,000 UNITS, WEEKLY
     Route: 042
     Dates: start: 200201, end: 200211
  8. PROCRIT [Suspect]
     Active Substance: ERYTHROPOIETIN
     Dosage: 12,000 UNITS, WEEKLY
     Route: 042
     Dates: start: 200306, end: 200402
  9. PROCRIT [Suspect]
     Active Substance: ERYTHROPOIETIN
     Dosage: 9,000 UNITS, WEEKLY
     Route: 042
     Dates: start: 200402, end: 200508
  10. PROCRIT [Suspect]
     Active Substance: ERYTHROPOIETIN
     Dosage: 20,000 UNITS, EVERY 3 WEEKS
     Route: 042
     Dates: start: 20150218, end: 201506
  11. AMLODIPINE [Concomitant]
     Active Substance: AMLODIPINE BESYLATE
     Indication: HYPERTENSION
     Dosage: 5 MG, TWICE DAILY
  12. ASPIRIN. [Concomitant]
     Active Substance: ASPIRIN
     Indication: PROPHYLAXIS
     Dosage: 325 MG, DAILY
  13. NEVANAC [Concomitant]
     Active Substance: NEPAFENAC
     Indication: GLAUCOMA
     Dosage: UNK UNK, DAILY
  14. CENTRUM SILVER [Concomitant]
     Active Substance: MINERALS\VITAMINS
     Indication: SUPPLEMENTATION THERAPY
     Dosage: UNK UNK, DAILY
  15. FUROSEMIDE. [Concomitant]
     Active Substance: FUROSEMIDE
     Indication: FLUID RETENTION
     Dosage: 20 MG, DAILY
  16. LEVEMIR [Concomitant]
     Active Substance: INSULIN DETEMIR
     Indication: TYPE 2 DIABETES MELLITUS
     Dosage: 3 MG (100 U/MG), DAILY
  17. PROCRIT [Suspect]
     Active Substance: ERYTHROPOIETIN
     Dosage: 20,000 UNITS, EVERY 2 WEEKS
     Route: 042
     Dates: start: 201606
  18. LOSARTAN. [Concomitant]
     Active Substance: LOSARTAN
     Indication: HYPERTENSION
     Dosage: 50 MG, DAILY
  19. LABETALOL [Concomitant]
     Active Substance: LABETALOL\LABETALOL HYDROCHLORIDE
     Indication: HYPERTENSION
     Dosage: 100 MG, TWICE DAILY
  20. RANITIDINE. [Concomitant]
     Active Substance: RANITIDINE
     Indication: GASTROOESOPHAGEAL REFLUX DISEASE
     Dosage: 150 MG, DAILY
  21. VICTOZA [Concomitant]
     Active Substance: LIRAGLUTIDE
     Indication: TYPE 2 DIABETES MELLITUS
     Dosage: 18 MG, DAILY
  22. TRAVATAN [Concomitant]
     Active Substance: TRAVOPROST
     Indication: GLAUCOMA
     Dosage: UNK UNK, DAILY
  23. PROCRIT [Suspect]
     Active Substance: ERYTHROPOIETIN
     Dosage: 8,000 UNITS, WEEKLY
     Route: 042
     Dates: start: 200211, end: 200303
  24. PROCRIT [Suspect]
     Active Substance: ERYTHROPOIETIN
     Dosage: 20,000 UNITS, MONTHLY
     Route: 042
     Dates: start: 201506, end: 201606

REACTIONS (5)
  - Cerebrovascular accident [Recovered/Resolved]
  - Hypertension [Unknown]
  - Gait disturbance [Not Recovered/Not Resolved]
  - Incorrect product storage [Not Recovered/Not Resolved]
  - Dizziness [Not Recovered/Not Resolved]

NARRATIVE: CASE EVENT DATE: 201111
